FAERS Safety Report 6743428-7 (Version None)
Quarter: 2010Q2

REPORT INFORMATION
  Report Type: 
  Country: None (occurrence: None)
  Receive Date: 20100527
  Receipt Date: 20100517
  Transmission Date: 20101027
  Serious: Yes (Other)
  Sender: FDA-Public Use
  Company Number: PHHY2010DE02819

PATIENT
  Sex: Female
  Weight: 80 kg

DRUGS (1)
  1. EXTAVIA [Suspect]
     Indication: MULTIPLE SCLEROSIS
     Dosage: 1 ML, QOD
     Route: 058
     Dates: start: 20091125

REACTIONS (3)
  - ALOPECIA [None]
  - MULTIPLE SCLEROSIS RELAPSE [None]
  - SKIN REACTION [None]
